FAERS Safety Report 22078011 (Version 1)
Quarter: 2023Q1

REPORT INFORMATION
  Report Type: Spontaneous
  Country: BE (occurrence: BE)
  Receive Date: 20230309
  Receipt Date: 20230309
  Transmission Date: 20230417
  Serious: Yes (Life-Threatening, Hospitalization, Other)
  Sender: FDA-Public Use
  Company Number: BE-NOVPHSZ-PHHY2018BE009330

PATIENT
  Age: 53 Year
  Sex: Female

DRUGS (2)
  1. AMLODIPINE [Suspect]
     Active Substance: AMLODIPINE BESYLATE
     Indication: Product used for unknown indication
     Dosage: 250-500 MG
     Route: 065
  2. CLORAZEPATE DIPOTASSIUM [Suspect]
     Active Substance: CLORAZEPATE DIPOTASSIUM
     Indication: Product used for unknown indication
     Dosage: 2-3 G
     Route: 065

REACTIONS (5)
  - Toxicity to various agents [Recovering/Resolving]
  - Shock [Recovering/Resolving]
  - Disorientation [Recovering/Resolving]
  - Blood pressure systolic decreased [Recovering/Resolving]
  - Overdose [Recovering/Resolving]
